FAERS Safety Report 6986558-7 (Version None)
Quarter: 2010Q3

REPORT INFORMATION
  Report Type: 
  Country: None (occurrence: None)
  Receive Date: 20100915
  Receipt Date: 20090713
  Transmission Date: 20110219
  Serious: No
  Sender: FDA-Public Use
  Company Number: US-WYE-H10121109

PATIENT
  Sex: Female
  Weight: 68.1 kg

DRUGS (8)
  1. PRISTIQ [Suspect]
     Indication: DEPRESSION
     Route: 048
     Dates: start: 20090101
  2. ADVAIR DISKUS 100/50 [Concomitant]
  3. XANAX [Concomitant]
  4. ALLEGRA D 24 HOUR [Concomitant]
  5. FLONASE [Concomitant]
  6. ADVAIR DISKUS 100/50 [Concomitant]
  7. NORVASC [Concomitant]
  8. SINGULAIR [Concomitant]

REACTIONS (2)
  - CONDITION AGGRAVATED [None]
  - HEADACHE [None]
